FAERS Safety Report 5245966-5 (Version None)
Quarter: 2007Q1

REPORT INFORMATION
  Report Type: 
  Country: None (occurrence: None)
  Receive Date: 20070221
  Receipt Date: 20070213
  Transmission Date: 20070707
  Serious: Yes (Other)
  Sender: FDA-Public Use
  Company Number: CHNY2007JP00903

PATIENT
  Sex: Male

DRUGS (2)
  1. NICOTINE [Suspect]
     Indication: SMOKING CESSATION THERAPY
     Dosage: 21 MG, QD, TRANSDERMAL; 14 MG, QD, TRANSDERMAL
     Route: 062
     Dates: start: 20070111, end: 20070124
  2. NICOTINE [Suspect]
     Indication: SMOKING CESSATION THERAPY
     Dosage: 21 MG, QD, TRANSDERMAL; 14 MG, QD, TRANSDERMAL
     Route: 062
     Dates: start: 20070125, end: 20070131

REACTIONS (2)
  - APPLICATION SITE DERMATITIS [None]
  - URTICARIA GENERALISED [None]
